FAERS Safety Report 6266856-5 (Version None)
Quarter: 2009Q3

REPORT INFORMATION
  Report Type: 
  Country: None (occurrence: None)
  Receive Date: 20090714
  Receipt Date: 20090710
  Transmission Date: 20100115
  Serious: Yes (Hospitalization, Other)
  Sender: FDA-Public Use
  Company Number: US-ASTRAZENECA-2009UW13016

PATIENT
  Age: 62 Year
  Sex: Female
  Weight: 89.4 kg

DRUGS (2)
  1. SEROQUEL [Suspect]
     Indication: PSYCHOTIC DISORDER
     Route: 048
  2. SEROQUEL [Suspect]
     Dosage: INCREASED
     Route: 048

REACTIONS (2)
  - DYSTONIA [None]
  - MAJOR DEPRESSION [None]
